FAERS Safety Report 5473766-X (Version None)
Quarter: 2007Q3

REPORT INFORMATION
  Report Type: 
  Country: None (occurrence: None)
  Receive Date: 20070831
  Receipt Date: 20070522
  Transmission Date: 20080115
  Serious: No
  Sender: FDA-Public Use
  Company Number: 241859

PATIENT
  Age: 79 Year
  Sex: Female

DRUGS (11)
  1. LUCENTIS [Suspect]
     Indication: MACULAR DEGENERATION
     Dates: start: 20070314
  2. EVISTA [Concomitant]
  3. LEVOXYL [Concomitant]
  4. ZETIA [Concomitant]
  5. LIPITOR [Concomitant]
  6. RIMANTADINE (RIMANTADINE HYDROCHLORIDE) [Concomitant]
  7. COREG [Concomitant]
  8. ASPIRIN [Concomitant]
  9. CALCIUM (CALCIUM NOS) [Concomitant]
  10. EYE VITAMIN (VITAMIN NOS) [Concomitant]
  11. CENTRUM SILVER (MINERALS NOS, MULTIVITAMINS NOS) [Concomitant]

REACTIONS (3)
  - EYE IRRITATION [None]
  - LACRIMATION INCREASED [None]
  - OCULAR HYPERAEMIA [None]
